FAERS Safety Report 7772603-8 (Version None)
Quarter: 2011Q3

REPORT INFORMATION
  Report Type: 
  Country: None (occurrence: None)
  Receive Date: 20110922
  Receipt Date: 20101217
  Transmission Date: 20111222
  Serious: No
  Sender: FDA-Public Use
  Company Number: US-ASTRAZENECA-2010SE55180

PATIENT
  Age: 43 Year
  Sex: Male
  Weight: 113.4 kg

DRUGS (9)
  1. IMITREX [Concomitant]
     Indication: MIGRAINE
  2. TOPAMAX [Concomitant]
     Indication: MIGRAINE
  3. CELEXA [Concomitant]
     Indication: DEPRESSION
  4. PREDNISONE [Concomitant]
     Indication: NEUROPATHY PERIPHERAL
  5. LORAZEPAM [Concomitant]
     Indication: ANXIETY
  6. CLINDAMYCIN [Concomitant]
     Indication: DENTAL DISORDER PROPHYLAXIS
  7. SEROQUEL [Suspect]
     Indication: SLEEP DISORDER
     Route: 048
  8. OXYCONTIN [Concomitant]
     Indication: MIGRAINE
  9. OXYCONTIN [Concomitant]

REACTIONS (4)
  - DRUG DOSE OMISSION [None]
  - INTENTIONAL DRUG MISUSE [None]
  - INSOMNIA [None]
  - MIGRAINE [None]
